FAERS Safety Report 14861985 (Version 11)
Quarter: 2019Q3

REPORT INFORMATION
  Report Type: Spontaneous
  Country: CA (occurrence: CA)
  Receive Date: 20180508
  Receipt Date: 20190815
  Transmission Date: 20191004
  Serious: Yes (Death, Life-Threatening, Hospitalization, Other)
  Sender: FDA-Public Use
  Company Number: CA-CELGENEUS-CAN-20180501112

PATIENT
  Age: 81 Year
  Sex: Female

DRUGS (35)
  1. VENETOCLAX. [Concomitant]
     Active Substance: VENETOCLAX
     Dosage: 14.2857 MILLIGRAM
     Route: 048
     Dates: start: 20180312, end: 20180403
  2. VENETOCLAX. [Concomitant]
     Active Substance: VENETOCLAX
     Dosage: 14.2857 MILLIGRAM
     Route: 048
     Dates: start: 20180308, end: 20180308
  3. PANTOPRAZOLE SODIUM. [Concomitant]
     Active Substance: PANTOPRAZOLE SODIUM
     Indication: MELAENA
     Dosage: 40 MILLIGRAM
     Route: 048
     Dates: start: 20180306
  4. PANTOPRAZOLE SODIUM. [Concomitant]
     Active Substance: PANTOPRAZOLE SODIUM
     Dosage: 80 MILLIGRAM
     Route: 041
     Dates: start: 20180429, end: 20180501
  5. AZACITIDINE. [Suspect]
     Active Substance: AZACITIDINE
     Indication: ACUTE MYELOID LEUKAEMIA
     Dosage: 75 MILLIGRAM/SQ. METER
     Route: 058
     Dates: start: 20180306, end: 20180308
  6. PANTOPRAZOLE SODIUM. [Concomitant]
     Active Substance: PANTOPRAZOLE SODIUM
     Dosage: 1920 MILLIGRAM
     Route: 041
     Dates: start: 20180425, end: 20180425
  7. FLUCONAZOL [Concomitant]
     Active Substance: FLUCONAZOLE
     Indication: FUNGAL INFECTION
     Dosage: 400 MILLIGRAM
     Route: 048
     Dates: start: 20180205, end: 20180228
  8. VENETOCLAX. [Concomitant]
     Active Substance: VENETOCLAX
     Dosage: 7.1429 MILLIGRAM
     Route: 048
     Dates: start: 20180307, end: 20180307
  9. PANTOPRAZOLE SODIUM. [Concomitant]
     Active Substance: PANTOPRAZOLE SODIUM
     Indication: GASTROOESOPHAGEAL REFLUX DISEASE
     Dosage: 80 MILLIGRAM
     Route: 048
     Dates: start: 20171011, end: 20180305
  10. ATORVASTATIN [Concomitant]
     Active Substance: ATORVASTATIN
     Indication: HYPERLIPIDAEMIA
     Dosage: 2.8571 MILLIGRAM
     Route: 048
     Dates: start: 2011, end: 20180305
  11. METFORMIN [Concomitant]
     Active Substance: METFORMIN HYDROCHLORIDE
     Dosage: 4000 MILLIGRAM
     Route: 048
     Dates: start: 20180228, end: 20180319
  12. METFORMIN [Concomitant]
     Active Substance: METFORMIN HYDROCHLORIDE
     Dosage: 2000 MILLIGRAM
     Route: 048
     Dates: start: 20180320, end: 20180424
  13. FLUCONAZOL [Concomitant]
     Active Substance: FLUCONAZOLE
     Dosage: 400 MILLIGRAM
     Route: 048
     Dates: start: 20180430, end: 20180509
  14. VITAMIN K [Concomitant]
     Active Substance: PHYTONADIONE
     Indication: MELAENA
     Route: 065
     Dates: start: 20180425, end: 20180425
  15. AZACITIDINE. [Suspect]
     Active Substance: AZACITIDINE
     Dosage: 75 MILLIGRAM/SQ. METER
     Route: 058
     Dates: start: 20180312, end: 20180315
  16. VENETOCLAX. [Concomitant]
     Active Substance: VENETOCLAX
     Indication: ACUTE MYELOID LEUKAEMIA
     Dosage: 3.5714 MILLIGRAM
     Route: 048
     Dates: start: 20180306, end: 20180306
  17. PANTOPRAZOLE SODIUM. [Concomitant]
     Active Substance: PANTOPRAZOLE SODIUM
     Dosage: 80 MILLIGRAM
     Route: 048
     Dates: start: 20180313, end: 20180425
  18. PANTOPRAZOLE SODIUM. [Concomitant]
     Active Substance: PANTOPRAZOLE SODIUM
     Dosage: 192 MILLIGRAM
     Route: 041
     Dates: start: 20180501, end: 20180504
  19. ACYCLOVIR. [Concomitant]
     Active Substance: ACYCLOVIR
     Indication: ANTIVIRAL PROPHYLAXIS
     Dosage: 800 MILLIGRAM
     Route: 048
     Dates: start: 20180205, end: 20180509
  20. PENTAMIDINE [Concomitant]
     Active Substance: PENTAMIDINE
     Indication: ANTIFUNGAL PROPHYLAXIS
     Dosage: 10 MILLIGRAM
     Route: 055
     Dates: start: 20180406, end: 20180503
  21. ONDANSETRON [Concomitant]
     Active Substance: ONDANSETRON
     Indication: NAUSEA
     Dosage: 24 MILLIGRAM
     Route: 041
     Dates: start: 20180509, end: 20180514
  22. ALLOPURINOL. [Concomitant]
     Active Substance: ALLOPURINOL
     Dosage: 300 MILLIGRAM
     Route: 048
     Dates: start: 20180312, end: 20180313
  23. FER PLUS [Concomitant]
     Indication: MINERAL SUPPLEMENTATION
     Dosage: 28 MILLIGRAM
     Route: 048
     Dates: start: 2017, end: 20180425
  24. VITAMIN B12 [Concomitant]
     Active Substance: CYANOCOBALAMIN
     Indication: VITAMIN B12 DEFICIENCY
     Dosage: 1200 MICROGRAM
     Route: 048
     Dates: start: 2015, end: 20180505
  25. PHYTOMENADIONE [Concomitant]
     Active Substance: PHYTONADIONE
     Indication: MELAENA
     Dosage: 10 MILLIGRAM
     Route: 048
     Dates: start: 20180425, end: 20180425
  26. RISEDRONATE [Concomitant]
     Active Substance: RISEDRONATE SODIUM
     Indication: OSTEOPOROSIS
     Dosage: 35 MILLIGRAM
     Route: 048
     Dates: start: 2011, end: 20180313
  27. PANTOPRAZOLE SODIUM. [Concomitant]
     Active Substance: PANTOPRAZOLE SODIUM
     Dosage: 80 MILLIGRAM
     Route: 041
     Dates: start: 20180505, end: 20180509
  28. ATORVASTATIN [Concomitant]
     Active Substance: ATORVASTATIN
     Dosage: 2.8571 MILLIGRAM
     Route: 048
     Dates: start: 20180308, end: 20180504
  29. VENTOLIN [Concomitant]
     Active Substance: ALBUTEROL SULFATE
     Indication: BRONCHOSPASM
     Route: 055
     Dates: start: 20180406, end: 20180503
  30. POTASSIUM CHLORIDE. [Concomitant]
     Active Substance: POTASSIUM CHLORIDE
     Indication: HYPOKALAEMIA
     Dosage: 4 MILLIMOLE
     Route: 041
     Dates: start: 20180426, end: 20180429
  31. POTASSIUM CHLORIDE. [Concomitant]
     Active Substance: POTASSIUM CHLORIDE
     Dosage: 40 MILLIGRAM
     Route: 048
     Dates: start: 20180426, end: 20180509
  32. PANTOPRAZOLE SODIUM. [Concomitant]
     Active Substance: PANTOPRAZOLE SODIUM
     Dosage: 192 MILLIGRAM
     Route: 041
     Dates: start: 20180425, end: 20180429
  33. LEVOTHYROXINE. [Concomitant]
     Active Substance: LEVOTHYROXINE
     Indication: HYPOTHYROIDISM
     Dosage: 16 MICROGRAM
     Route: 048
     Dates: start: 1965, end: 20180509
  34. METFORMIN [Concomitant]
     Active Substance: METFORMIN HYDROCHLORIDE
     Indication: TYPE 2 DIABETES MELLITUS
     Dosage: 500 MILLIGRAM
     Route: 048
     Dates: start: 20180221, end: 20180227
  35. ALLOPURINOL. [Concomitant]
     Active Substance: ALLOPURINOL
     Indication: PROPHYLAXIS
     Dosage: 300 MILLIGRAM
     Route: 048
     Dates: start: 20180305, end: 20180309

REACTIONS (3)
  - Escherichia bacteraemia [Fatal]
  - Escherichia bacteraemia [Recovered/Resolved]
  - Cardiac failure congestive [Not Recovered/Not Resolved]

NARRATIVE: CASE EVENT DATE: 20180423
